FAERS Safety Report 8606038-2 (Version None)
Quarter: 2012Q3

REPORT INFORMATION
  Report Type: 
  Country: None (occurrence: None)
  Receive Date: 20120820
  Receipt Date: 19930429
  Transmission Date: 20120928
  Serious: Yes (Hospitalization, Other)
  Sender: FDA-Public Use
  Company Number: US-ROCHE-1099326

PATIENT
  Age: 63 Year
  Sex: Male

DRUGS (1)
  1. ACTIVASE [Suspect]
     Indication: ACUTE MYOCARDIAL INFARCTION

REACTIONS (8)
  - ATRIOVENTRICULAR BLOCK [None]
  - DYSPNOEA [None]
  - PULMONARY GRANULOMA [None]
  - DIABETES MELLITUS [None]
  - HIATUS HERNIA [None]
  - GRANULOMA [None]
  - GRANULOMATOUS LIVER DISEASE [None]
  - GASTROOESOPHAGEAL REFLUX DISEASE [None]
